FAERS Safety Report 5596163-5 (Version None)
Quarter: 2007Q4

REPORT INFORMATION
  Report Type: 
  Country: None (occurrence: None)
  Receive Date: 20071218
  Receipt Date: 20070108
  Transmission Date: 20080405
  Serious: Yes (Hospitalization, Other)
  Sender: FDA-Public Use
  Company Number: 2006082929

PATIENT
  Sex: Female

DRUGS (3)
  1. BEXTRA [Suspect]
     Indication: PAIN
     Dosage: 20 MG (20 MG,1 IN 1 D)
     Dates: start: 20040607
  2. CELEBREX [Suspect]
     Indication: PAIN
     Dosage: 400 MG (200 MG,2 IN 1 D)
     Dates: start: 20040801, end: 20040901
  3. VIOXX [Suspect]
     Dates: start: 20040201, end: 20041104

REACTIONS (1)
  - MYOCARDIAL INFARCTION [None]
